FAERS Safety Report 16701931 (Version 1)
Quarter: 2019Q3

REPORT INFORMATION
  Report Type: Spontaneous
  Country: US (occurrence: US)
  Receive Date: 20190627
  Receipt Date: 20190627
  Transmission Date: 20191004
  Serious: No
  Sender: FDA-Public Use
  Company Number: None

PATIENT
  Age: 71 Year
  Sex: Female

DRUGS (1)
  1. AMBRISENTAN 5MG TAB (X30) [Suspect]
     Active Substance: AMBRISENTAN
     Indication: PULMONARY HYPERTENSION
     Dates: start: 201906, end: 20190620

REACTIONS (6)
  - Abdominal pain upper [None]
  - Liver function test increased [None]
  - Dyspnoea [None]
  - Fatigue [None]
  - Oedema [None]
  - Nausea [None]

NARRATIVE: CASE EVENT DATE: 20190620
